FAERS Safety Report 8228248-9 (Version None)
Quarter: 2012Q1

REPORT INFORMATION
  Report Type: 
  Country: None (occurrence: None)
  Receive Date: 20120322
  Receipt Date: 20111115
  Transmission Date: 20120608
  Serious: Yes (Hospitalization, Other)
  Sender: FDA-Public Use
  Company Number: US-BRISTOL-MYERS SQUIBB COMPANY-16215923

PATIENT
  Age: 67 Year
  Sex: Male

DRUGS (4)
  1. NEXIUM [Concomitant]
  2. LORTAB [Concomitant]
     Dosage: 1 DF= 2TAB
  3. ERBITUX [Suspect]
     Indication: HEAD AND NECK CANCER
     Dates: start: 20111031, end: 20111031
  4. AMBIEN [Concomitant]
     Dosage: 1 DF= 1 TAB

REACTIONS (1)
  - INFUSION RELATED REACTION [None]
